FAERS Safety Report 15780250 (Version 1)
Quarter: 2019Q1

REPORT INFORMATION
  Report Type: Spontaneous
  Country: TR (occurrence: TR)
  Receive Date: 20190102
  Receipt Date: 20190102
  Transmission Date: 20190417
  Serious: Yes (Other)
  Sender: FDA-Public Use
  Company Number: TR-ROCHE-2238259

PATIENT
  Age: 31 Year
  Sex: Female

DRUGS (1)
  1. XOLAIR [Suspect]
     Active Substance: OMALIZUMAB
     Indication: URTICARIA CHRONIC
     Dosage: 2 DF, QMO (INJECTION TO 2 ARMS IN A MONTH)
     Route: 065

REACTIONS (5)
  - Pain [Unknown]
  - Disease progression [Unknown]
  - Pruritus [Unknown]
  - Rash [Unknown]
  - Feeling abnormal [Unknown]
